FAERS Safety Report 8534366-8 (Version None)
Quarter: 2012Q3

REPORT INFORMATION
  Report Type: 
  Country: None (occurrence: None)
  Receive Date: 20120724
  Receipt Date: 20120718
  Transmission Date: 20120928
  Serious: Yes (Other)
  Sender: FDA-Public Use
  Company Number: PHHY2011CA109332

PATIENT
  Sex: Female

DRUGS (2)
  1. GILENYA [Suspect]
     Dosage: 0.5 MG, QD
     Route: 048
     Dates: end: 20111223
  2. GILENYA [Suspect]
     Indication: RELAPSING-REMITTING MULTIPLE SCLEROSIS
     Dosage: 0.5 MG, QD
     Route: 048
     Dates: start: 20111212

REACTIONS (13)
  - HYPERSENSITIVITY [None]
  - PARAESTHESIA [None]
  - DIZZINESS [None]
  - EYE IRRITATION [None]
  - MUSCLE SPASMS [None]
  - ORAL HERPES [None]
  - NASAL CONGESTION [None]
  - VIITH NERVE PARALYSIS [None]
  - BURNING SENSATION [None]
  - MUSCLE CONTRACTIONS INVOLUNTARY [None]
  - NASOPHARYNGITIS [None]
  - LACRIMATION INCREASED [None]
  - HEADACHE [None]
